FAERS Safety Report 24858776 (Version 2)
Quarter: 2025Q3

REPORT INFORMATION
  Report Type: Spontaneous
  Country: US (occurrence: US)
  Receive Date: 20250118
  Receipt Date: 20250730
  Transmission Date: 20251021
  Serious: No
  Sender: BRISTOL-MYERS SQUIBB COMPANY
  Company Number: US-BRISTOL-MYERS SQUIBB COMPANY-2025-006985

PATIENT
  Age: 67 Year
  Sex: Male

DRUGS (2)
  1. POMALYST [Suspect]
     Active Substance: POMALIDOMIDE
     Indication: Plasma cell myeloma
     Route: 048
  2. POMALYST [Suspect]
     Active Substance: POMALIDOMIDE
     Dosage: FREQUENCY: TAKE 1 WHOLE CAPSULE BY MOUTH W/ WATER, W/ OR W/O FOOD AT THE SAME TIME DAILY ON DAYS 1-2
     Route: 048

REACTIONS (2)
  - Pain [Recovering/Resolving]
  - Fatigue [Not Recovered/Not Resolved]
